FAERS Safety Report 20200780 (Version 4)
Quarter: 2022Q1

REPORT INFORMATION
  Report Type: Report from Study
  Country: BE (occurrence: BE)
  Receive Date: 20211217
  Receipt Date: 20220126
  Transmission Date: 20220423
  Serious: No
  Sender: FDA-Public Use
  Company Number: BE-BAYER-2021A223056

PATIENT
  Age: 82 Year
  Sex: Female

DRUGS (15)
  1. STIVARGA [Suspect]
     Active Substance: REGORAFENIB
     Indication: Gastrointestinal stromal tumour
     Dosage: DAILY DOSE 80 MG
     Dates: start: 20210928
  2. STIVARGA [Suspect]
     Active Substance: REGORAFENIB
     Indication: Hepatocellular carcinoma
     Dosage: 120 MG
     Dates: start: 20211122
  3. STIVARGA [Suspect]
     Active Substance: REGORAFENIB
     Indication: Gastrointestinal stromal tumour
     Dosage: DAILY DOSE 80 MG
     Route: 048
     Dates: start: 20211227
  4. THYRONINE [Concomitant]
     Dosage: 100 UNK
  5. HYDROCHLOROTHIAZIDE\OLMESARTAN MEDOXOMIL [Concomitant]
     Active Substance: HYDROCHLOROTHIAZIDE\OLMESARTAN MEDOXOMIL
     Dosage: 40/12,5
  6. NOBITEN [NEBIVOLOL] [Concomitant]
     Dosage: 5 MG, UNK
  7. INDAPAMIDE [Concomitant]
     Active Substance: INDAPAMIDE
     Dosage: 2.5 MG, UNK
  8. BUMETANIDE [Concomitant]
     Active Substance: BUMETANIDE
     Dosage: 1 MG, UNK
  9. ELIQUIS [Concomitant]
     Active Substance: APIXABAN
     Dosage: 2.5 MG, UNK
  10. ALLOPURINOL [Concomitant]
     Active Substance: ALLOPURINOL
     Dosage: UNK
  11. SIMVASTATIN [Concomitant]
     Active Substance: SIMVASTATIN
     Dosage: UNK
  12. FENTANYL [Concomitant]
     Active Substance: FENTANYL
     Dosage: UNK
  13. MAGNE B PLUS D [Concomitant]
     Dosage: UNK
  14. ULTRA-K [Concomitant]
     Indication: Hypokalaemia
     Dosage: UNK
     Dates: start: 20211206, end: 20211221
  15. DULCOSOFT [MACROGOL] [Concomitant]
     Dosage: UNK

REACTIONS (10)
  - Blood pressure diastolic decreased [Recovered/Resolved]
  - Weight increased [Recovered/Resolved]
  - Cough [Recovered/Resolved]
  - Diarrhoea [Recovering/Resolving]
  - Fatigue [Recovering/Resolving]
  - Palmar-plantar erythrodysaesthesia syndrome [Recovering/Resolving]
  - Hypertension [Recovered/Resolved]
  - Nausea [Recovered/Resolved]
  - Off label use [None]
  - Hypertension [Recovered/Resolved]

NARRATIVE: CASE EVENT DATE: 20210928
